FAERS Safety Report 19948829 (Version 1)
Quarter: 2021Q4

REPORT INFORMATION
  Report Type: Report from Study
  Country: US (occurrence: US)
  Receive Date: 20211012
  Receipt Date: 20211012
  Transmission Date: 20220304
  Serious: No
  Sender: FDA-Public Use
  Company Number: US-LUNDBECK-DKLU3039397

PATIENT
  Age: 48 Year
  Sex: Female

DRUGS (2)
  1. VYEPTI [Suspect]
     Active Substance: EPTINEZUMAB-JJMR
     Indication: Migraine
     Route: 041
     Dates: start: 20210817
  2. UBRELVI [Concomitant]
     Indication: Product used for unknown indication
     Route: 065

REACTIONS (1)
  - Feeling abnormal [Recovered/Resolved]

NARRATIVE: CASE EVENT DATE: 20210817
